FAERS Safety Report 9355233 (Version 2)
Quarter: 2013Q3

REPORT INFORMATION
  Report Type: Spontaneous
  Country: US (occurrence: US)
  Receive Date: 20130619
  Receipt Date: 20130718
  Transmission Date: 20140515
  Serious: No
  Sender: FDA-Public Use
  Company Number: US-PFIZER INC-2013163283

PATIENT
  Age: 72 Year
  Sex: Female
  Weight: 70.3 kg

DRUGS (2)
  1. NICOTROL INHALER [Suspect]
     Indication: SMOKING CESSATION THERAPY
     Dosage: 10 MG, AS NEEDED
     Dates: start: 201304, end: 20130613
  2. NIACIN [Concomitant]
     Indication: BLOOD CHOLESTEROL INCREASED
     Dosage: 500 MG DAILY

REACTIONS (1)
  - Headache [Not Recovered/Not Resolved]
